FAERS Safety Report 14807760 (Version 1)
Quarter: 2018Q2

REPORT INFORMATION
  Report Type: Spontaneous
  Country: GB (occurrence: GB)
  Receive Date: 20180425
  Receipt Date: 20180425
  Transmission Date: 20180711
  Serious: Yes (Other)
  Sender: FDA-Public Use
  Company Number: GB-MYLANLABS-2018M1026385

PATIENT
  Age: 31 Year
  Sex: Female

DRUGS (3)
  1. LEVETIRACETAM. [Suspect]
     Active Substance: LEVETIRACETAM
     Indication: SEIZURE
     Dosage: UNK, UNKNOWN DOSE
  2. CLOBAZAM [Concomitant]
     Active Substance: CLOBAZAM
     Indication: SEIZURE
     Dosage: UNKNOWN DOSE
  3. LAMOTRIGINE. [Concomitant]
     Active Substance: LAMOTRIGINE
     Indication: PRODUCT USED FOR UNKNOWN INDICATION
     Dosage: UNK, UNKNOWN DOSE

REACTIONS (8)
  - Breast feeding [Unknown]
  - Post-traumatic stress disorder [Unknown]
  - Confusional state [Unknown]
  - Anxiety [Unknown]
  - Epilepsy [Unknown]
  - Exposure during pregnancy [Unknown]
  - Pain [Unknown]
  - Mood altered [Unknown]
